FAERS Safety Report 8901208 (Version 8)
Quarter: 2013Q3

REPORT INFORMATION
  Report Type: Report from Study
  Country: JP (occurrence: JP)
  Receive Date: 20121109
  Receipt Date: 20130917
  Transmission Date: 20140515
  Serious: Yes (Death, Other)
  Sender: FDA-Public Use
  Company Number: JP-VERTEX PHARMACEUTICAL INC.-2012-024237

PATIENT
  Age: 51 Year
  Sex: Male

DRUGS (17)
  1. VX-950 (TELAPREVIR) [Suspect]
     Indication: CHRONIC HEPATITIS C
     Dosage: 1500 MG, QD
     Route: 048
     Dates: start: 20120814, end: 20121015
  2. RIBAVIRIN [Suspect]
     Indication: CHRONIC HEPATITIS C
     Dosage: 1000 MG, QD
     Route: 048
     Dates: start: 20120814, end: 20120827
  3. RIBAVIRIN [Suspect]
     Dosage: 800 MG, QD
     Route: 048
     Dates: start: 20120828, end: 20120903
  4. RIBAVIRIN [Suspect]
     Dosage: 600 MG, QD
     Route: 048
     Dates: start: 20120904, end: 20121015
  5. PEGINTERFERON ALFA-2B [Suspect]
     Indication: CHRONIC HEPATITIS C
     Dosage: 1.5 ?G/KG, QW
     Route: 058
     Dates: start: 20120814, end: 20120820
  6. PEGINTERFERON ALFA-2B [Suspect]
     Dosage: 1 ?G/KG, QW
     Route: 058
     Dates: start: 20120821, end: 20120903
  7. PEGINTERFERON ALFA-2B [Suspect]
     Dosage: 0.8 ?G/KG, QW
     Route: 058
     Dates: start: 20120904, end: 20121009
  8. PREDONINE [Suspect]
     Indication: ADVERSE EVENT
     Dosage: 30 MG, QD
     Route: 048
     Dates: start: 20120925, end: 20121008
  9. PREDONINE [Suspect]
     Dosage: 25 MG, QD
     Route: 048
     Dates: start: 20121009, end: 20121015
  10. PREDONINE [Suspect]
     Dosage: 20 MG, QD
     Route: 048
     Dates: start: 20121016, end: 20121022
  11. PREDONINE [Suspect]
     Dosage: 15 MG, QD
     Route: 048
     Dates: start: 20121023, end: 20121025
  12. WARFARIN POTASSIUM [Concomitant]
     Dosage: 2 MG, QD
     Route: 048
     Dates: end: 20121025
  13. NORVASC [Concomitant]
     Dosage: 5 MG, QD
     Route: 048
     Dates: end: 20121025
  14. NOVOLIN R [Concomitant]
     Dosage: 7-5-3 UNIT
     Route: 058
     Dates: end: 20121025
  15. NOVOLIN R [Concomitant]
     Dosage: 7-7-5 UNIT
     Route: 058
     Dates: start: 20121002, end: 20121016
  16. LOXONIN [Concomitant]
     Dosage: 120 MG, QD
     Route: 048
     Dates: start: 20120814, end: 20121025
  17. ROHYPNOL [Concomitant]
     Dosage: 2 MG, QD
     Route: 048
     Dates: start: 20120814, end: 20121025

REACTIONS (4)
  - Sepsis [Fatal]
  - Platelet count decreased [Unknown]
  - Aneurysm ruptured [Fatal]
  - Psoas abscess [Fatal]
